FAERS Safety Report 8619961-X (Version None)
Quarter: 2012Q3

REPORT INFORMATION
  Report Type: 
  Country: None (occurrence: None)
  Receive Date: 20120824
  Receipt Date: 20120815
  Transmission Date: 20120928
  Serious: Yes (Other)
  Sender: FDA-Public Use
  Company Number: DE-ELI_LILLY_AND_COMPANY-DE201208004707

PATIENT
  Age: 36 Year
  Sex: Male

DRUGS (2)
  1. ANAESTHETICS [Concomitant]
     Dosage: UNK
     Dates: start: 20120811, end: 20120811
  2. CYMBALTA [Suspect]
     Dosage: 30 MG, QD
     Route: 048
     Dates: start: 20120718, end: 20120801

REACTIONS (7)
  - DEPRESSED LEVEL OF CONSCIOUSNESS [None]
  - HEADACHE [None]
  - DRUG WITHDRAWAL SYNDROME [None]
  - INTENTIONAL DRUG MISUSE [None]
  - ACCIDENT [None]
  - SURGERY [None]
  - VERTIGO POSITIONAL [None]
